FAERS Safety Report 22052025 (Version 1)
Quarter: 2023Q1

REPORT INFORMATION
  Report Type: Spontaneous
  Country: US (occurrence: US)
  Receive Date: 20230302
  Receipt Date: 20230302
  Transmission Date: 20230417
  Serious: Yes (Other)
  Sender: FDA-Public Use
  Company Number: US-AMGEN-USASP2023033177

PATIENT
  Sex: Male

DRUGS (2)
  1. BEVACIZUMAB [Suspect]
     Active Substance: BEVACIZUMAB
     Indication: Retinopathy proliferative
     Dosage: 0.5 MILLIGRAM /0.02 CC
  2. BEVACIZUMAB [Suspect]
     Active Substance: BEVACIZUMAB
     Indication: Osteoporosis-pseudoglioma syndrome

REACTIONS (10)
  - Retinal haemorrhage [Unknown]
  - Tractional retinal detachment [Unknown]
  - Neovascularisation [Unknown]
  - Nystagmus [Unknown]
  - Visual impairment [Unknown]
  - Off label use [Unknown]
  - Night blindness [Unknown]
  - Visual field defect [Unknown]
  - Retinal fovea disorder [Unknown]
  - Drug ineffective for unapproved indication [Unknown]
